FAERS Safety Report 7131157-X (Version None)
Quarter: 2010Q4

REPORT INFORMATION
  Report Type: 
  Country: None (occurrence: None)
  Receive Date: 20101201
  Receipt Date: 20101119
  Transmission Date: 20110411
  Serious: Yes (Other)
  Sender: FDA-Public Use
  Company Number: ES-PFIZER INC-2010154183

PATIENT
  Age: 82 Year
  Sex: Female

DRUGS (12)
  1. XALATAN [Suspect]
     Dosage: UNK
     Route: 065
  2. SERC [Concomitant]
     Route: 065
  3. SERETIDE [Concomitant]
     Route: 065
  4. VENTOLIN [Concomitant]
     Route: 065
  5. SIMVASTATIN [Concomitant]
     Route: 065
  6. LEXATIN [Concomitant]
     Route: 065
  7. CITALOPRAM [Concomitant]
     Route: 065
  8. ATROVENT [Concomitant]
     Route: 065
  9. BOI K [Concomitant]
     Route: 065
  10. ASPARTIC ACID [Concomitant]
     Route: 065
  11. PLAVIX [Concomitant]
     Route: 065
  12. ELEBLOC [Concomitant]
     Route: 065

REACTIONS (1)
  - BRADYCARDIA [None]
